FAERS Safety Report 13038319 (Version 1)
Quarter: 2016Q4

REPORT INFORMATION
  Report Type: Report from Study
  Country: None (occurrence: US)
  Receive Date: 20161219
  Receipt Date: 20161219
  Transmission Date: 20170207
  Serious: No
  Sender: FDA-Public Use
  Company Number: US-BIOVITRUM-2015US0400

PATIENT
  Age: 59 Year
  Sex: Male

DRUGS (3)
  1. KINERET [Suspect]
     Active Substance: ANAKINRA
     Indication: VASCULITIS
     Route: 058
     Dates: start: 20150619
  2. LISINOPRIL. [Concomitant]
     Active Substance: LISINOPRIL
     Indication: HYPERTENSION
  3. OMEPRAZOLE. [Concomitant]
     Active Substance: OMEPRAZOLE
     Indication: GASTROOESOPHAGEAL REFLUX DISEASE

REACTIONS (2)
  - Peripheral swelling [Unknown]
  - Blister [Unknown]

NARRATIVE: CASE EVENT DATE: 20150706
